FAERS Safety Report 5073527-X (Version None)
Quarter: 2006Q3

REPORT INFORMATION
  Report Type: 
  Country: None (occurrence: None)
  Receive Date: 20060717
  Receipt Date: 20051213
  Transmission Date: 20061208
  Serious: No
  Sender: FDA-Public Use
  Company Number: 2005002383

PATIENT
  Age: 71 Year
  Sex: Male

DRUGS (4)
  1. TARCEVA [Suspect]
     Indication: LUNG NEOPLASM MALIGNANT
     Dosage: 150 MG (QD), ORAL
     Route: 048
     Dates: start: 20051026
  2. CARDURA [Concomitant]
  3. LISINOPRIL [Concomitant]
  4. ADVAIR DISKUS 100/50 [Concomitant]

REACTIONS (3)
  - DERMATITIS ACNEIFORM [None]
  - FATIGUE [None]
  - HAIR GROWTH ABNORMAL [None]
